FAERS Safety Report 9666266 (Version 1)
Quarter: 2013Q4

REPORT INFORMATION
  Report Type: Spontaneous
  Country: US (occurrence: None)
  Receive Date: 20131031
  Receipt Date: 20131031
  Transmission Date: 20140711
  Serious: No
  Sender: FDA-Public Use
  Company Number: FK201304719

PATIENT
  Age: 73 Year
  Sex: Female

DRUGS (1)
  1. XENAZINE [Suspect]
     Indication: MEIGE^S SYNDROME
     Dosage: 50MG, 3 IN 1 D, ORAL
     Route: 048
     Dates: start: 201308

REACTIONS (1)
  - Death [None]
